FAERS Safety Report 19931153 (Version 1)
Quarter: 2021Q4

REPORT INFORMATION
  Report Type: Spontaneous
  Country: US (occurrence: US)
  Receive Date: 20211008
  Receipt Date: 20211008
  Transmission Date: 20220303
  Serious: No
  Sender: FDA-Public Use
  Company Number: US-DRREDDYS-LIT/USA/21/0142385

PATIENT
  Age: 66 Year
  Sex: Female

DRUGS (3)
  1. ONDANSETRON [Suspect]
     Active Substance: ONDANSETRON
     Indication: Nausea
  2. SORAFENIB [Concomitant]
     Active Substance: SORAFENIB
     Indication: Hepatocellular carcinoma
  3. OCTREOTIDE [Concomitant]
     Active Substance: OCTREOTIDE
     Indication: Neuroendocrine tumour
     Route: 030

REACTIONS (1)
  - Drug ineffective [Unknown]
